FAERS Safety Report 7666686-3 (Version None)
Quarter: 2011Q3

REPORT INFORMATION
  Report Type: 
  Country: None (occurrence: None)
  Receive Date: 20110806
  Receipt Date: 20110629
  Transmission Date: 20111222
  Serious: No
  Sender: FDA-Public Use
  Company Number: US-ABBOTT-11P-163-0835152-00

PATIENT
  Sex: Male

DRUGS (1)
  1. NIASPAN [Suspect]
     Indication: PRODUCT USED FOR UNKNOWN INDICATION
     Dates: start: 20110622

REACTIONS (5)
  - ERYTHEMA [None]
  - JOINT SWELLING [None]
  - PRURITUS [None]
  - OEDEMA PERIPHERAL [None]
  - URTICARIA [None]
